FAERS Safety Report 16855801 (Version 1)
Quarter: 2019Q3

REPORT INFORMATION
  Report Type: Spontaneous
  Country: US (occurrence: US)
  Receive Date: 20190805
  Receipt Date: 20190805
  Transmission Date: 20191005
  Serious: No
  Sender: FDA-Public Use
  Company Number: None

PATIENT
  Age: 15 Year
  Sex: Male

DRUGS (1)
  1. HUMATROPE [Suspect]
     Active Substance: SOMATROPIN
     Indication: BODY HEIGHT BELOW NORMAL
     Dosage: ?          OTHER DOSE:2.9MG;?
     Route: 058
     Dates: start: 20190607

REACTIONS (1)
  - Device malfunction [None]

NARRATIVE: CASE EVENT DATE: 20190802
